FAERS Safety Report 9565092 (Version 2)
Quarter: 2013Q3

REPORT INFORMATION
  Report Type: Report from Study
  Country: ZA (occurrence: ZA)
  Receive Date: 20130930
  Receipt Date: 20130930
  Transmission Date: 20140515
  Serious: Yes (Other)
  Sender: FDA-Public Use
  Company Number: ZA-ELI_LILLY_AND_COMPANY-ZA201304000955

PATIENT
  Sex: Female

DRUGS (4)
  1. HUMAN INSULIN (RDNA ORIGIN) NPH [Suspect]
     Indication: DIABETES MELLITUS
     Dosage: 28 U, EACH MORNING
     Dates: start: 2012
  2. HUMAN INSULIN (RDNA ORIGIN) NPH [Suspect]
     Dosage: 17 U, EACH EVENING
     Dates: start: 2012
  3. HUMALOG LISPRO [Suspect]
     Indication: DIABETES MELLITUS
     Dosage: 10 U, QD
     Route: 058
     Dates: start: 201303
  4. PREGAMAL [Concomitant]
     Indication: ANAEMIA
     Dosage: 1 UNK, UNK
     Route: 048
     Dates: start: 201303

REACTIONS (3)
  - Maternal exposure during pregnancy [Recovered/Resolved]
  - Exposure during breast feeding [Recovered/Resolved]
  - Suppressed lactation [Unknown]
